FAERS Safety Report 5531716-1 (Version None)
Quarter: 2007Q4

REPORT INFORMATION
  Report Type: 
  Country: None (occurrence: None)
  Receive Date: 20071128
  Receipt Date: 20071119
  Transmission Date: 20080405
  Serious: Yes (Other)
  Sender: FDA-Public Use
  Company Number: CHPA2007US12501

PATIENT
  Age: 70 Year
  Sex: Female

DRUGS (1)
  1. MAALOX ANTACID/ANTIGAS MAX QDTABS ASST (NCH)(CALCIUM CARBONATE, SIMETH [Suspect]
     Dosage: ORAL
     Route: 048

REACTIONS (1)
  - DIABETES MELLITUS [None]
